FAERS Safety Report 10946199 (Version 1)
Quarter: 2015Q1

REPORT INFORMATION
  Report Type: Spontaneous
  Country: US (occurrence: None)
  Receive Date: 20150212
  Receipt Date: 20150212
  Transmission Date: 20150721
  Serious: No
  Sender: FDA-Public Use
  Company Number: TPA2011A08632

PATIENT
  Age: 68 Year
  Sex: Male
  Weight: 134.72 kg

DRUGS (6)
  1. PERCOCET (PARACETAMOL, OXYCODONE HYDROCHORIDE OXCODONE TEREPHTHALATE) [Concomitant]
  2. COREG [Concomitant]
     Active Substance: CARVEDILOL
  3. ALTACE (RAMIPRIL) [Concomitant]
  4. TIKOSYN [Suspect]
     Active Substance: DOFETILIDE
  5. ULORIC [Suspect]
     Active Substance: FEBUXOSTAT
     Indication: GOUT
     Dosage: 40 MG, 1 IN 1 D, PER ORAL?6-12 MONTHS AGO
     Route: 048
  6. COUMADIN (WARFARIN SODIUIM) [Concomitant]

REACTIONS (3)
  - Pyrexia [None]
  - Gout [None]
  - Abdominal discomfort [None]
